FAERS Safety Report 16404734 (Version 3)
Quarter: 2019Q3

REPORT INFORMATION
  Report Type: Spontaneous
  Country: CN (occurrence: CN)
  Receive Date: 20190607
  Receipt Date: 20190701
  Transmission Date: 20191004
  Serious: Yes (Other)
  Sender: FDA-Public Use
  Company Number: CN-GILEAD-2019-0411922

PATIENT
  Age: 66 Year
  Sex: Male
  Weight: 48 kg

DRUGS (5)
  1. TACROLIMUS. [Concomitant]
     Active Substance: TACROLIMUS
  2. TIGECYCLINE. [Concomitant]
     Active Substance: TIGECYCLINE
  3. EPCLUSA [Suspect]
     Active Substance: SOFOSBUVIR\VELPATASVIR
     Indication: HEPATITIS C
     Dosage: 1 DOSAGE FORM, QD
     Route: 048
     Dates: start: 20190520
  4. FERROUS SUCCINATE [Concomitant]
     Active Substance: FERROUS SUCCINATE
  5. AMBROXOL [Concomitant]
     Active Substance: AMBROXOL

REACTIONS (4)
  - Glomerular filtration rate decreased [Unknown]
  - Blood urea increased [Not Recovered/Not Resolved]
  - Blood creatinine increased [Not Recovered/Not Resolved]
  - Infection [Unknown]

NARRATIVE: CASE EVENT DATE: 20190603
